FAERS Safety Report 8292770-X (Version None)
Quarter: 2012Q2

REPORT INFORMATION
  Report Type: 
  Country: None (occurrence: None)
  Receive Date: 20120417
  Receipt Date: 20110627
  Transmission Date: 20120825
  Serious: No
  Sender: FDA-Public Use
  Company Number: US-ASTRAZENECA-2011SE38643

PATIENT
  Age: 54 Year
  Sex: Female

DRUGS (8)
  1. METOPROLOL TARTRATE [Suspect]
     Indication: HYPERTENSION
     Route: 048
  2. TRILIPIX [Concomitant]
     Indication: HYPERCHOLESTEROLAEMIA
  3. GLIPIZIDE [Concomitant]
     Indication: DIABETES MELLITUS
  4. ETODOLAC [Concomitant]
     Indication: ARTHRITIS
  5. BENAZEPRIL HYDROCHLORIDE [Concomitant]
     Indication: HYPERTENSION
  6. NEXIUM [Suspect]
     Indication: DYSPEPSIA
     Route: 048
     Dates: start: 20110401
  7. CRESTOR [Suspect]
     Indication: HYPERCHOLESTEROLAEMIA
     Route: 048
  8. METFORMIN HCL [Concomitant]
     Indication: DIABETES MELLITUS

REACTIONS (5)
  - DRY MOUTH [None]
  - COUGH [None]
  - BLOOD GLUCOSE INCREASED [None]
  - HEADACHE [None]
  - FATIGUE [None]
